FAERS Safety Report 4959827-X (Version None)
Quarter: 2006Q1

REPORT INFORMATION
  Report Type: 
  Country: None (occurrence: None)
  Receive Date: 20060328
  Receipt Date: 20060321
  Transmission Date: 20060701
  Serious: Yes (Death, Hospitalization, Other)
  Sender: FDA-Public Use
  Company Number: USA-2006-0023865

PATIENT
  Age: 49 Year
  Sex: Female

DRUGS (3)
  1. MS CONTIN [Suspect]
     Indication: PAIN
     Dosage: 15 MG, SEE TEXT
  2. INTRON A (INTERFERON ALFA-2B) [Suspect]
     Indication: RENAL CELL CARCINOMA STAGE UNSPECIFIED
     Dosage: 3 MIU, TIW
     Dates: start: 20051128, end: 20051208
  3. IRESSA [Suspect]
     Indication: RENAL CELL CARCINOMA STAGE UNSPECIFIED
     Dates: start: 20051128

REACTIONS (6)
  - ANALGESIC DRUG LEVEL INCREASED [None]
  - DEHYDRATION [None]
  - DISEASE PROGRESSION [None]
  - MENTAL STATUS CHANGES [None]
  - PAIN [None]
  - RESPIRATORY FAILURE [None]
